FAERS Safety Report 9332721 (Version 1)
Quarter: 2013Q2

REPORT INFORMATION
  Report Type: Spontaneous
  Country: US (occurrence: US)
  Receive Date: 20130606
  Receipt Date: 20130606
  Transmission Date: 20140414
  Serious: No
  Sender: FDA-Public Use
  Company Number: US-PFIZER INC-2013167637

PATIENT
  Sex: Female

DRUGS (3)
  1. DOXYCYCLINE HYCLATE [Suspect]
  2. NAPROXEN SODIUM [Suspect]
  3. GLUCOSAMINE [Suspect]

REACTIONS (1)
  - Drug hypersensitivity [Unknown]
